FAERS Safety Report 7744813-7 (Version None)
Quarter: 2011Q3

REPORT INFORMATION
  Report Type: 
  Country: None (occurrence: None)
  Receive Date: 20110912
  Receipt Date: 20110912
  Transmission Date: 20111222
  Serious: Yes (Life-Threatening)
  Sender: FDA-Public Use
  Company Number: None

PATIENT
  Age: 20 Year
  Sex: Female
  Weight: 68.038 kg

DRUGS (1)
  1. SEROQUEL [Suspect]
     Dosage: 750 MG
     Route: 048
     Dates: start: 20040801, end: 20050601

REACTIONS (6)
  - HEART RATE DECREASED [None]
  - SOMNAMBULISM [None]
  - FEELING ABNORMAL [None]
  - WEIGHT INCREASED [None]
  - FALL [None]
  - METABOLIC DISORDER [None]
